FAERS Safety Report 5269824-5 (Version None)
Quarter: 2007Q1

REPORT INFORMATION
  Report Type: 
  Country: None (occurrence: None)
  Receive Date: 20070314
  Receipt Date: 20070302
  Transmission Date: 20070707
  Serious: No
  Sender: FDA-Public Use
  Company Number: 2007-155366-NL

PATIENT
  Age: 37 Year
  Sex: Female

DRUGS (1)
  1. MIRTAZAPINE [Suspect]
     Dosage: DF

REACTIONS (3)
  - MALAISE [None]
  - PLEURAL FIBROSIS [None]
  - RED BLOOD CELL SEDIMENTATION RATE INCREASED [None]
